FAERS Safety Report 6102704-1 (Version None)
Quarter: 2009Q1

REPORT INFORMATION
  Report Type: 
  Country: None (occurrence: None)
  Receive Date: 20090304
  Receipt Date: 20070105
  Transmission Date: 20090719
  Serious: Yes (Hospitalization)
  Sender: FDA-Public Use
  Company Number: D0051682A

PATIENT
  Sex: Male

DRUGS (2)
  1. REQUIP [Suspect]
     Dosage: 5MG THREE TIMES PER DAY
     Route: 065
     Dates: start: 20000101, end: 20060101
  2. MADOPAR [Suspect]
     Route: 065
     Dates: start: 20000101, end: 20060101

REACTIONS (2)
  - FATIGUE [None]
  - SUDDEN ONSET OF SLEEP [None]
